FAERS Safety Report 16666242 (Version 1)
Quarter: 2019Q3

REPORT INFORMATION
  Report Type: Spontaneous
  Country: US (occurrence: US)
  Receive Date: 20190805
  Receipt Date: 20190805
  Transmission Date: 20191004
  Serious: Yes (Other)
  Sender: FDA-Public Use
  Company Number: US-ACCORD-093753

PATIENT
  Age: 41 Year
  Sex: Female
  Weight: 115.67 kg

DRUGS (10)
  1. RADIAPLEXRX [Concomitant]
  2. PROCHLORPERAZINE. [Concomitant]
     Active Substance: PROCHLORPERAZINE
  3. TRAMADOL. [Concomitant]
     Active Substance: TRAMADOL
  4. DEXAMETHASONE. [Concomitant]
     Active Substance: DEXAMETHASONE
  5. DOCETAXEL ACCORD [Suspect]
     Active Substance: DOCETAXEL
     Indication: INVASIVE DUCTAL BREAST CARCINOMA
     Dates: start: 20161216, end: 20170412
  6. HYDROCHLOROTHIAZIDE/LISINOPRIL [Concomitant]
     Dosage: STRENGTH: 20/12.5 MG
     Route: 048
  7. LACTULOSE. [Concomitant]
     Active Substance: LACTULOSE
  8. TAMOXIFEN [Concomitant]
     Active Substance: TAMOXIFEN
     Dates: start: 20170711
  9. ZOLPIDEM [Concomitant]
     Active Substance: ZOLPIDEM TARTRATE
  10. NEOSAR [Suspect]
     Active Substance: CYCLOPHOSPHAMIDE
     Indication: INVASIVE DUCTAL BREAST CARCINOMA
     Dates: start: 20161216, end: 20170412

REACTIONS (1)
  - Alopecia [Not Recovered/Not Resolved]

NARRATIVE: CASE EVENT DATE: 201710
